FAERS Safety Report 17348931 (Version 1)
Quarter: 2020Q1

REPORT INFORMATION
  Report Type: Report from Study
  Country: US (occurrence: US)
  Receive Date: 20200129
  Receipt Date: 20200129
  Transmission Date: 20200409
  Serious: No
  Sender: FDA-Public Use
  Company Number: US-EXELIXIS-CABO-19024844

PATIENT
  Age: 70 Year
  Sex: Female
  Weight: 59.41 kg

DRUGS (1)
  1. CABOMETYX [Suspect]
     Active Substance: CABOZANTINIB S-MALATE
     Indication: RENAL CANCER
     Dosage: 60 MG, QD
     Route: 048
     Dates: start: 20191001, end: 201910

REACTIONS (4)
  - Cardiac disorder [Unknown]
  - Oral mucosal blistering [Unknown]
  - Fungal infection [Unknown]
  - Rash [Unknown]

NARRATIVE: CASE EVENT DATE: 201910
